FAERS Safety Report 10290587 (Version 1)
Quarter: 2014Q3

REPORT INFORMATION
  Report Type: Spontaneous
  Country: US (occurrence: None)
  Receive Date: 20140707
  Receipt Date: 20140707
  Transmission Date: 20150326
  Serious: Yes (Other)
  Sender: FDA-Public Use
  Company Number: None

PATIENT
  Age: 82 Year
  Sex: Female
  Weight: 77.11 kg

DRUGS (1)
  1. CARTIA XT [Suspect]
     Active Substance: DILTIAZEM HYDROCHLORIDE
     Indication: ARRHYTHMIA PROPHYLAXIS
     Dosage: 1 PILL ONCE DAILY
     Route: 048

REACTIONS (7)
  - Tinnitus [None]
  - Flatulence [None]
  - Dyspnoea [None]
  - Dizziness [None]
  - Face oedema [None]
  - Visual impairment [None]
  - Oedema peripheral [None]

NARRATIVE: CASE EVENT DATE: 20140325
